FAERS Safety Report 5266161-X (Version None)
Quarter: 2007Q1

REPORT INFORMATION
  Report Type: 
  Country: None (occurrence: None)
  Receive Date: 20070315
  Receipt Date: 20070302
  Transmission Date: 20070707
  Serious: Yes (Other)
  Sender: FDA-Public Use
  Company Number: 2007GB00465

PATIENT
  Age: 35 Year
  Sex: Female

DRUGS (6)
  1. DIPRIVAN [Suspect]
     Indication: IN VITRO FERTILISATION
     Route: 042
     Dates: start: 20000601
  2. PREGNYL [Suspect]
     Indication: IN VITRO FERTILISATION
     Route: 065
     Dates: start: 20000601
  3. PROGESTERONE [Suspect]
     Indication: IN VITRO FERTILISATION
     Route: 067
     Dates: start: 20000601
  4. PROSTAP [Suspect]
     Indication: IN VITRO FERTILISATION
     Route: 065
     Dates: start: 20000601
  5. PUREGON [Suspect]
     Route: 065
     Dates: start: 20000601
  6. RAPIFEN [Suspect]
     Indication: IN VITRO FERTILISATION
     Route: 042
     Dates: start: 20000601

REACTIONS (4)
  - ABORTION INDUCED [None]
  - DRUG EXPOSURE BEFORE PREGNANCY [None]
  - HAEMORRHAGE [None]
  - SEX CHROMOSOME ABNORMALITY [None]
